FAERS Safety Report 5508004-2 (Version None)
Quarter: 2007Q4

REPORT INFORMATION
  Report Type: 
  Country: None (occurrence: None)
  Receive Date: 20071031
  Receipt Date: 20070820
  Transmission Date: 20080405
  Serious: No
  Sender: FDA-Public Use
  Company Number: 200712320BWH

PATIENT
  Age: 54 Year
  Sex: Male
  Weight: 56.6996 kg

DRUGS (9)
  1. NEXAVAR [Suspect]
     Indication: HEPATIC NEOPLASM MALIGNANT
     Dosage: 400 MG, BID, ORAL, 200 MG, BID, ORAL
     Route: 048
     Dates: start: 20070710, end: 20070716
  2. NEXAVAR [Suspect]
     Indication: HEPATIC NEOPLASM MALIGNANT
     Dosage: 400 MG, BID, ORAL, 200 MG, BID, ORAL
     Route: 048
     Dates: start: 20070724
  3. MULTIPLE UNKNOWN POST ORGAN TRANSPLANT MEDICATIONS [Concomitant]
  4. PROGRAF [Concomitant]
  5. BARACLUDE [Concomitant]
  6. BACTRIM [Concomitant]
  7. VITAMIN B6 [Concomitant]
  8. OSCAL D [CALCIUM CARBONATE, VITAMIN D NOS] [Concomitant]
  9. H-BIG [Concomitant]

REACTIONS (12)
  - BACK PAIN [None]
  - DIARRHOEA [None]
  - ERYTHEMA [None]
  - FATIGUE [None]
  - GAIT DISTURBANCE [None]
  - MOBILITY DECREASED [None]
  - OEDEMA PERIPHERAL [None]
  - PAIN IN EXTREMITY [None]
  - PALMAR-PLANTAR ERYTHRODYSAESTHESIA SYNDROME [None]
  - PRURITUS [None]
  - RASH [None]
  - SKIN EXFOLIATION [None]
